FAERS Safety Report 5026180-5 (Version None)
Quarter: 2006Q2

REPORT INFORMATION
  Report Type: 
  Country: None (occurrence: None)
  Receive Date: 20060608
  Receipt Date: 20060522
  Transmission Date: 20061013
  Serious: Yes (Other)
  Sender: FDA-Public Use
  Company Number: US_0509122556

PATIENT
  Age: 45 Year
  Sex: Female

DRUGS (6)
  1. ZYPREXA [Suspect]
     Indication: BIPOLAR DISORDER
     Dosage: SEE IMAGE
     Route: 048
     Dates: start: 19970101, end: 19990101
  2. ZYPREXA [Suspect]
     Indication: BIPOLAR DISORDER
     Dosage: SEE IMAGE
     Route: 048
     Dates: start: 20020201, end: 20040801
  3. PROZAC [Suspect]
     Indication: DEPRESSION
     Dosage: 20MG, ORAL
     Route: 048
     Dates: start: 19970101, end: 20040101
  4. REMERON [Concomitant]
  5. AMBIEN [Concomitant]
  6. CLONAZEPAM [Concomitant]

REACTIONS (7)
  - DIABETES MELLITUS NON-INSULIN-DEPENDENT [None]
  - DIZZINESS [None]
  - HEPATITIS C [None]
  - MOOD SWINGS [None]
  - PARANOIA [None]
  - POLLAKIURIA [None]
  - WEIGHT FLUCTUATION [None]
